FAERS Safety Report 9767887 (Version 2)
Quarter: 2014Q1

REPORT INFORMATION
  Report Type: Spontaneous
  Country: JP (occurrence: JP)
  Receive Date: 20131217
  Receipt Date: 20140116
  Transmission Date: 20141002
  Serious: Yes (Hospitalization, Other)
  Sender: FDA-Public Use
  Company Number: PHHY2013JP146314

PATIENT
  Age: 53 Year
  Sex: Female

DRUGS (2)
  1. NEORAL [Suspect]
     Indication: SYSTEMIC LUPUS ERYTHEMATOSUS
     Dosage: 150 MG, UNK
     Route: 048
     Dates: start: 2003, end: 201311
  2. PREDNISOLONE [Suspect]
     Indication: SYSTEMIC LUPUS ERYTHEMATOSUS
     Dosage: 14 MG, UNK
     Dates: start: 2003

REACTIONS (5)
  - Colon cancer [Unknown]
  - Abdominal discomfort [Unknown]
  - Abdominal pain [Unknown]
  - Large intestine polyp [Unknown]
  - Adenocarcinoma [Unknown]
